FAERS Safety Report 6942880-1 (Version None)
Quarter: 2010Q3

REPORT INFORMATION
  Report Type: 
  Country: None (occurrence: None)
  Receive Date: 20100826
  Receipt Date: 20100817
  Transmission Date: 20110219
  Serious: Yes (Death)
  Sender: FDA-Public Use
  Company Number: FR-ROCHE-721912

PATIENT
  Age: 87 Year
  Sex: Female

DRUGS (1)
  1. CAPECITABINE [Suspect]
     Dosage: 15 DAYS CYCLE
     Route: 065
     Dates: start: 20071009, end: 20080401

REACTIONS (1)
  - GENERAL PHYSICAL HEALTH DETERIORATION [None]
